FAERS Safety Report 4867016-2 (Version None)
Quarter: 2005Q4

REPORT INFORMATION
  Report Type: 
  Country: None (occurrence: None)
  Receive Date: 20051227
  Receipt Date: 20051219
  Transmission Date: 20060501
  Serious: Yes (Life-Threatening, Hospitalization)
  Sender: FDA-Public Use
  Company Number: US-MERCK-0512USA02805

PATIENT
  Sex: Male

DRUGS (2)
  1. VYTORIN [Suspect]
     Route: 048
  2. VERAPAMIL [Concomitant]
     Route: 065

REACTIONS (1)
  - HEART RATE INCREASED [None]
